FAERS Safety Report 6548515-4 (Version None)
Quarter: 2010Q1

REPORT INFORMATION
  Report Type: 
  Country: None (occurrence: None)
  Receive Date: 20100124
  Receipt Date: 20090807
  Transmission Date: 20100710
  Serious: No
  Sender: FDA-Public Use
  Company Number: US-ALLERGAN-0910945US

PATIENT
  Sex: Female

DRUGS (9)
  1. RESTASIS [Suspect]
     Indication: DRY EYE
     Dosage: UNK, UNKNOWN
     Route: 047
     Dates: start: 20090601
  2. SIMVASTATIN [Concomitant]
  3. ATENOLOL [Concomitant]
  4. SYNTHROID [Concomitant]
  5. PRILOSEC OTC [Concomitant]
  6. ACTONEL [Concomitant]
  7. FUROSEMIDE [Concomitant]
  8. ULTRAM [Concomitant]
  9. CARAFATE [Concomitant]

REACTIONS (4)
  - EYE PAIN [None]
  - HEADACHE [None]
  - PRURITUS [None]
  - URTICARIA [None]
